FAERS Safety Report 12681129 (Version 3)
Quarter: 2018Q2

REPORT INFORMATION
  Report Type: Spontaneous
  Country: CA (occurrence: CA)
  Receive Date: 20160824
  Receipt Date: 20180612
  Transmission Date: 20180711
  Serious: Yes (Death, Hospitalization, Other)
  Sender: FDA-Public Use
  Company Number: CA-009507513-1604CAN001502

PATIENT
  Age: 31 Year
  Sex: Female
  Weight: 70 kg

DRUGS (4)
  1. KEYTRUDA [Suspect]
     Active Substance: PEMBROLIZUMAB
     Indication: REFRACTORY CANCER
     Dosage: 140 MG, Q3W
     Route: 042
  2. KEYTRUDA [Suspect]
     Active Substance: PEMBROLIZUMAB
     Indication: METASTATIC MALIGNANT MELANOMA
     Dosage: 140 MG, Q3W
     Route: 042
     Dates: start: 20150714, end: 2016
  3. DILAUDID [Suspect]
     Active Substance: HYDROMORPHONE HYDROCHLORIDE
     Dosage: UNK
  4. KEYTRUDA [Suspect]
     Active Substance: PEMBROLIZUMAB
     Indication: OVARIAN CANCER

REACTIONS (10)
  - Decreased appetite [Unknown]
  - Product use in unapproved indication [Unknown]
  - Pain [Unknown]
  - Death [Fatal]
  - Malignant neoplasm progression [Unknown]
  - Drain removal [Unknown]
  - Adverse reaction [Unknown]
  - Fatigue [Unknown]
  - Feeling abnormal [Unknown]
  - Circumstance or information capable of leading to medication error [Unknown]

NARRATIVE: CASE EVENT DATE: 20160330
